FAERS Safety Report 4642340-7 (Version None)
Quarter: 2005Q2

REPORT INFORMATION
  Report Type: 
  Country: None (occurrence: None)
  Receive Date: 20050420
  Receipt Date: 20050404
  Transmission Date: 20051028
  Serious: Yes (Hospitalization, Other)
  Sender: FDA-Public Use
  Company Number: 8009977

PATIENT
  Age: 41 Year
  Sex: Female

DRUGS (3)
  1. KEPPRA [Suspect]
     Indication: EPILEPSY
     Dosage: 500 MG 2/D
     Dates: start: 20050101
  2. CARBAMAZEPINE [Concomitant]
  3. SULTIAM [Concomitant]

REACTIONS (6)
  - ACUTE RESPIRATORY DISTRESS SYNDROME [None]
  - CYANOSIS [None]
  - LOSS OF CONSCIOUSNESS [None]
  - PULMONARY FIBROSIS [None]
  - PULMONARY FUNCTION TEST DECREASED [None]
  - UPPER RESPIRATORY TRACT INFECTION [None]
